FAERS Safety Report 6816517-6 (Version None)
Quarter: 2010Q3

REPORT INFORMATION
  Report Type: 
  Country: None (occurrence: None)
  Receive Date: 20100706
  Receipt Date: 20100304
  Transmission Date: 20110219
  Serious: Yes (Other)
  Sender: FDA-Public Use
  Company Number: US-ASTRAZENECA-2007UW02078

PATIENT
  Age: 15720 Day
  Sex: Female
  Weight: 82.1 kg

DRUGS (25)
  1. SEROQUEL [Suspect]
     Indication: INSOMNIA
     Route: 048
     Dates: start: 19990101
  2. SEROQUEL [Suspect]
     Dosage: STRENGTH: 25 MG AND 400 MG
     Route: 048
     Dates: start: 19991111
  3. SEROQUEL [Suspect]
     Dosage: 25 MG-600 MG
     Route: 048
     Dates: start: 20000722
  4. LAMICTAL [Concomitant]
     Indication: POST-TRAUMATIC STRESS DISORDER
     Dosage: 25 MG-200 MG
     Dates: start: 20031001, end: 20051001
  5. LAMICTAL [Concomitant]
     Dates: start: 20040420
  6. HALDOL [Concomitant]
     Dosage: 0.5MG - 1.5 MG
     Dates: start: 19981101, end: 20020101
  7. RISPERDAL [Concomitant]
     Dates: start: 20020601
  8. AMBIEN [Concomitant]
     Dates: start: 19991111
  9. BENZONATATE [Concomitant]
     Indication: COUGH
     Dates: start: 19991107
  10. PROZAC [Concomitant]
     Dates: start: 19991120
  11. TRICOR [Concomitant]
     Dosage: 145 MG- 290 MG
     Route: 048
     Dates: start: 20051007
  12. LOPID [Concomitant]
     Dates: start: 20051007
  13. GLUCOPHAGE [Concomitant]
     Dosage: STRENGTH: 1500 MG TO 1000 MG
     Route: 048
     Dates: start: 20051007
  14. LOPRESSOR [Concomitant]
     Dosage: STRENGTH: 25 MG TO 50 MG
     Route: 048
     Dates: start: 20051007
  15. PROTONIX [Concomitant]
     Route: 048
     Dates: start: 20051007
  16. RANITIDINE HCL [Concomitant]
     Route: 048
     Dates: start: 20051007
  17. IRON SULFATETHIAMIN COMPOUND TAB [Concomitant]
     Dates: start: 20051007
  18. CELEXA [Concomitant]
     Route: 048
     Dates: start: 20021009
  19. KLONOPIN [Concomitant]
     Indication: PANIC ATTACK
     Dosage: STRENGTH: 0.5 MG - 2 MG
     Route: 048
     Dates: start: 19951030
  20. KLONOPIN [Concomitant]
     Dosage: 2 MG, DAILY MORNING
     Route: 048
     Dates: start: 20050926
  21. OMEGA FATTY ACIDS [Concomitant]
     Route: 048
     Dates: start: 20080319
  22. SIMVASTATIN [Concomitant]
     Route: 048
     Dates: start: 20080319
  23. VICODIN [Concomitant]
     Dates: start: 20031024
  24. PHENERGAN SUPPOSITORY [Concomitant]
     Dates: start: 20040420
  25. METOPROLOL TARTRATE [Concomitant]
     Dates: start: 20031024

REACTIONS (14)
  - ABDOMINAL PAIN UPPER [None]
  - ANXIETY [None]
  - DIABETES MELLITUS [None]
  - DIABETES MELLITUS INADEQUATE CONTROL [None]
  - DIABETIC NEUROPATHY [None]
  - DYSPEPSIA [None]
  - HYPERGLYCAEMIA [None]
  - MIGRAINE [None]
  - NAUSEA [None]
  - PAIN [None]
  - PANCREATITIS [None]
  - PANCREATITIS ACUTE [None]
  - PANCREATITIS CHRONIC [None]
  - TYPE 1 DIABETES MELLITUS [None]
